FAERS Safety Report 20489398 (Version 1)
Quarter: 2022Q1

REPORT INFORMATION
  Report Type: Spontaneous
  Country: IN (occurrence: IN)
  Receive Date: 20220218
  Receipt Date: 20220218
  Transmission Date: 20220423
  Serious: Yes (Death)
  Sender: FDA-Public Use
  Company Number: IN-PFIZER INC-2021808673

PATIENT
  Age: 80 Year
  Sex: Female

DRUGS (8)
  1. PALBOCICLIB [Suspect]
     Active Substance: PALBOCICLIB
     Indication: Breast cancer metastatic
     Dosage: 100 MG, CYCLIC (ONCE DAILY X3 WEEKS AND THEN 1 WEEK OFF)
     Route: 048
     Dates: start: 20210403, end: 2021
  2. PALBOCICLIB [Suspect]
     Active Substance: PALBOCICLIB
     Dosage: 100 MG, CYCLIC (ONCE DAILY X3 WEEKS AND THEN 1 WEEK OFF)
     Route: 048
     Dates: start: 20210604, end: 20211024
  3. FULVESTRANT [Concomitant]
     Active Substance: FULVESTRANT
     Indication: Breast cancer metastatic
     Dosage: 500 MG, CYCLIC (D1, D15, D28 THEN 4TH DOSE ONWARDS EVERY 28 DAYS)
     Route: 030
     Dates: start: 2021
  4. CALCIUM CARBONATE\CHOLECALCIFEROL [Concomitant]
     Active Substance: CALCIUM CARBONATE\CHOLECALCIFEROL
     Dosage: UNK, 1X/DAY
     Route: 048
  5. TAYO [COLECALCIFEROL] [Concomitant]
     Dosage: 60000 IU, WEEKLY
     Route: 048
  6. ZOLEDRONIC ACID [Concomitant]
     Active Substance: ZOLEDRONIC ACID
     Dosage: 4 MG, MONTHLY (4 MG + 100 ML NS IV OVER 30MIN Q3 MONTHLY)
     Route: 042
  7. CALCIUM CITRATE MALATE;FOLINIC ACID;VITAMIN D3 [Concomitant]
     Dosage: UNK, 2X/DAY
     Route: 048
  8. ALPRAZOLAM [Concomitant]
     Active Substance: ALPRAZOLAM
     Dosage: 0.5 MG, 1X/DAY (IN A NIGHT)
     Route: 048

REACTIONS (2)
  - Death [Fatal]
  - Neoplasm progression [Unknown]

NARRATIVE: CASE EVENT DATE: 20210101
